FAERS Safety Report 14129090 (Version 3)
Quarter: 2017Q4

REPORT INFORMATION
  Report Type: Report from Study
  Country: US (occurrence: US)
  Receive Date: 20171026
  Receipt Date: 20171109
  Transmission Date: 20180321
  Serious: Yes (Hospitalization)
  Sender: FDA-Public Use
  Company Number: US-EISAI MEDICAL RESEARCH-EC-2017-030323

PATIENT
  Age: 57 Year
  Sex: Male

DRUGS (8)
  1. LENVIMA [Suspect]
     Active Substance: LENVATINIB
     Route: 048
     Dates: start: 20171017
  2. LENVIMA [Suspect]
     Active Substance: LENVATINIB
     Indication: RENAL CANCER
     Route: 048
     Dates: start: 20170729, end: 201710
  3. LOVENOX [Suspect]
     Active Substance: ENOXAPARIN SODIUM
     Indication: THROMBOSIS
     Route: 058
     Dates: start: 201710
  4. AFINITOR [Concomitant]
     Active Substance: EVEROLIMUS
  5. ALLOPURINOL. [Concomitant]
     Active Substance: ALLOPURINOL
  6. OMEPRAZOLE. [Concomitant]
     Active Substance: OMEPRAZOLE
  7. PEPCID [Concomitant]
     Active Substance: FAMOTIDINE
  8. IMODIUM [Concomitant]
     Active Substance: LOPERAMIDE HYDROCHLORIDE

REACTIONS (17)
  - Decreased appetite [Not Recovered/Not Resolved]
  - Dysphonia [Not Recovered/Not Resolved]
  - Haematochezia [Unknown]
  - Blood pressure increased [Recovering/Resolving]
  - Fatigue [Unknown]
  - Epistaxis [Unknown]
  - Asthenia [Not Recovered/Not Resolved]
  - Pulmonary embolism [Recovering/Resolving]
  - Weight decreased [Unknown]
  - Pneumonia [Recovering/Resolving]
  - Chills [Not Recovered/Not Resolved]
  - Tremor [Not Recovered/Not Resolved]
  - Faeces discoloured [Not Recovered/Not Resolved]
  - Electrocardiogram abnormal [Not Recovered/Not Resolved]
  - Diarrhoea [Not Recovered/Not Resolved]
  - Constipation [Not Recovered/Not Resolved]
  - Tumour pain [Not Recovered/Not Resolved]

NARRATIVE: CASE EVENT DATE: 201708
